FAERS Safety Report 17432723 (Version 5)
Quarter: 2021Q1

REPORT INFORMATION
  Report Type: Report from Study
  Country: JP (occurrence: JP)
  Receive Date: 20200218
  Receipt Date: 20210317
  Transmission Date: 20210419
  Serious: Yes (Hospitalization, Other)
  Sender: FDA-Public Use
  Company Number: JP-AMGEN-JPNCT2020026892

PATIENT
  Age: 72 Year
  Sex: Female

DRUGS (56)
  1. LANSOPRAZOLE. [Suspect]
     Active Substance: LANSOPRAZOLE
     Indication: GASTRIC ULCER
     Dosage: 15 MG
     Route: 048
     Dates: end: 20160328
  2. OMEPRAZOLE. [Suspect]
     Active Substance: OMEPRAZOLE
     Indication: PRODUCT USED FOR UNKNOWN INDICATION
     Dosage: 40 MG
     Route: 065
     Dates: start: 20160707, end: 20160712
  3. VITANEURIN [Concomitant]
     Indication: PRODUCT USED FOR UNKNOWN INDICATION
     Dosage: 75 UNK  *SINGLE
     Route: 048
     Dates: end: 20160506
  4. ANTEBATE [Concomitant]
     Active Substance: BETAMETHASONE DIPROPIONATE
     Indication: PRODUCT USED FOR UNKNOWN INDICATION
     Dosage: UNK
     Route: 061
     Dates: start: 20160714, end: 20160716
  5. ADONA [Concomitant]
     Dosage: 100 UNK  *SINGLE *SINGLE
     Route: 065
     Dates: start: 20160526, end: 20160528
  6. CEFOTIAM [Concomitant]
     Active Substance: CEFOTIAM
     Indication: PRODUCT USED FOR UNKNOWN INDICATION
     Dosage: 2 GRAM
     Route: 065
     Dates: start: 20160526, end: 20160527
  7. FAMOTIDINE. [Concomitant]
     Active Substance: FAMOTIDINE
     Indication: GASTRIC ULCER
     Dosage: 20 MG
     Route: 065
     Dates: start: 20160526, end: 20160527
  8. BISOLVON [Concomitant]
     Active Substance: BROMHEXINE HYDROCHLORIDE
     Indication: PRODUCT USED FOR UNKNOWN INDICATION
     Dosage: 8 MG
     Route: 065
     Dates: start: 20160527, end: 20160527
  9. SANDOSTATIN [Concomitant]
     Active Substance: OCTREOTIDE ACETATE
     Indication: PRODUCT USED FOR UNKNOWN INDICATION
     Dosage: 200 UG
     Route: 065
     Dates: start: 20160707, end: 20160712
  10. SANDOSTATIN [Concomitant]
     Active Substance: OCTREOTIDE ACETATE
     Indication: PRODUCT USED FOR UNKNOWN INDICATION
  11. CINACALCET HCL [Suspect]
     Active Substance: CINACALCET HYDROCHLORIDE
     Dosage: 12.5 MILLIGRAM
     Route: 048
  12. COAHIBITOR [Suspect]
     Active Substance: NAFAMOSTAT MESYLATE
     Indication: PRODUCT USED FOR UNKNOWN INDICATION
     Dosage: 40 MG
     Route: 065
     Dates: start: 20160311, end: 20160318
  13. OMEPRAZOLE. [Suspect]
     Active Substance: OMEPRAZOLE
     Dosage: 40 UNK
     Route: 065
     Dates: start: 20160325, end: 20160328
  14. DIOVAN [Concomitant]
     Active Substance: VALSARTAN
     Indication: HYPERTENSION
     Dosage: 40 MG
     Route: 048
     Dates: end: 20160310
  15. LECICARBON [Concomitant]
     Active Substance: SODIUM BICARBONATE\SODIUM PHOSPHATE, MONOBASIC
     Indication: HYPERPARATHYROIDISM PRIMARY
     Dosage: 1 DF, PRN
     Route: 054
     Dates: start: 20160329
  16. DICLOFENAC NA [Concomitant]
     Active Substance: DICLOFENAC SODIUM
     Indication: PRODUCT USED FOR UNKNOWN INDICATION
     Dosage: 25 MG, PRN
     Route: 054
     Dates: start: 20160527, end: 20160528
  17. ADONA [Concomitant]
     Indication: PRODUCT USED FOR UNKNOWN INDICATION
     Dosage: 100 MG
     Route: 065
     Dates: start: 20160420, end: 20160420
  18. MEROPENEM. [Concomitant]
     Active Substance: MEROPENEM
     Indication: PRODUCT USED FOR UNKNOWN INDICATION
  19. COAHIBITOR [Suspect]
     Active Substance: NAFAMOSTAT MESYLATE
     Dosage: 20 MG
     Route: 065
     Dates: start: 20170119, end: 20170119
  20. ADONA [Concomitant]
     Dosage: 100 UNK
     Route: 065
     Dates: start: 20160420, end: 20160420
  21. TRANSAMIN [Concomitant]
     Active Substance: TRANEXAMIC ACID
     Indication: PRODUCT USED FOR UNKNOWN INDICATION
     Dosage: 1000 MG
     Route: 065
     Dates: start: 20160526, end: 20160528
  22. OMEPRAZOLE. [Suspect]
     Active Substance: OMEPRAZOLE
     Indication: PRODUCT USED FOR UNKNOWN INDICATION
     Dosage: 40 MG
     Route: 065
     Dates: start: 20160325, end: 20160328
  23. FUROSEMIDE. [Concomitant]
     Active Substance: FUROSEMIDE
     Dosage: 20 MG
     Route: 048
  24. SOSEGON [Concomitant]
     Active Substance: PENTAZOCINE
     Indication: PRODUCT USED FOR UNKNOWN INDICATION
     Dosage: 15 UNK  *SINGLE
     Route: 065
     Dates: start: 20160325, end: 20160325
  25. ADONA [Concomitant]
     Indication: PRODUCT USED FOR UNKNOWN INDICATION
     Dosage: 100 MG
     Route: 065
     Dates: start: 20160526, end: 20160528
  26. COAHIBITOR [Suspect]
     Active Substance: NAFAMOSTAT MESYLATE
     Dosage: 20 MG
     Route: 065
     Dates: start: 20161018, end: 20161018
  27. AMLODIPINE [Concomitant]
     Active Substance: AMLODIPINE BESYLATE
     Indication: HYPERTENSION
     Dosage: 2.5 MILLIGRAM
     Route: 048
  28. GLYCERIN. [Concomitant]
     Active Substance: GLYCERIN
     Indication: HYPERPARATHYROIDISM PRIMARY
     Dosage: 120 ML, PRN
     Route: 054
     Dates: start: 20160526
  29. SOSEGON [Concomitant]
     Active Substance: PENTAZOCINE
     Indication: PRODUCT USED FOR UNKNOWN INDICATION
     Dosage: 15 MILLIGRAM
     Route: 065
     Dates: start: 20160325, end: 20160325
  30. IRRADIATED RED BLOOD CELLS?LEUKOCYTES REDUCED [Concomitant]
     Active Substance: HUMAN RED BLOOD CELL
     Indication: PRODUCT USED FOR UNKNOWN INDICATION
     Dosage: 4 IU
     Route: 065
     Dates: start: 20160316, end: 20160316
  31. CINACALCET HCL [Suspect]
     Active Substance: CINACALCET HYDROCHLORIDE
     Indication: HYPERCALCAEMIA
     Dosage: UNK
     Route: 065
  32. LANSOPRAZOLE. [Suspect]
     Active Substance: LANSOPRAZOLE
     Dosage: 30 MG
     Route: 048
     Dates: start: 20160329
  33. FUROSEMIDE. [Concomitant]
     Active Substance: FUROSEMIDE
     Indication: HYPERTENSION
     Dosage: 20 MG
     Route: 048
  34. SENNOSIDE [Concomitant]
     Active Substance: SENNOSIDES
     Indication: HYPERPARATHYROIDISM PRIMARY
     Dosage: 24 MILLIGRAM, AS NECESSARY
     Route: 048
     Dates: start: 20160524
  35. SENNOSIDE [Concomitant]
     Active Substance: SENNOSIDES
     Indication: HYPERPARATHYROIDISM PRIMARY
     Dosage: 24 MILLIGRAM  *SINGLE
     Route: 048
     Dates: start: 20160524
  36. DICLOFENAC NA [Concomitant]
     Active Substance: DICLOFENAC SODIUM
     Indication: PRODUCT USED FOR UNKNOWN INDICATION
  37. ETODOLAC. [Concomitant]
     Active Substance: ETODOLAC
     Indication: PRODUCT USED FOR UNKNOWN INDICATION
     Dosage: 400 MG
     Route: 048
     Dates: start: 20160528, end: 20160610
  38. TRANSAMIN [Concomitant]
     Active Substance: TRANEXAMIC ACID
     Indication: PRODUCT USED FOR UNKNOWN INDICATION
     Dosage: 1000 MG
     Route: 065
     Dates: start: 20160420, end: 20160420
  39. BISOLVON [Concomitant]
     Active Substance: BROMHEXINE HYDROCHLORIDE
     Indication: PRODUCT USED FOR UNKNOWN INDICATION
     Dosage: 4 MG
     Route: 065
     Dates: start: 20160526, end: 20160526
  40. CINACALCET HCL [Suspect]
     Active Substance: CINACALCET HYDROCHLORIDE
     Dosage: UNK
     Route: 048
  41. CINACALCET HCL [Suspect]
     Active Substance: CINACALCET HYDROCHLORIDE
     Dosage: 25 MILLIGRAM, BID
     Route: 048
     Dates: start: 20160226
  42. FERROUS CITRATE NA [Concomitant]
     Active Substance: SODIUM FERROUS CITRATE
     Indication: IRON DEFICIENCY ANAEMIA
     Dosage: 50 MG
     Route: 048
  43. FERROUS CITRATE NA [Concomitant]
     Active Substance: SODIUM FERROUS CITRATE
     Dosage: 50 MG
     Route: 048
  44. VITANEURIN [Concomitant]
     Indication: PRODUCT USED FOR UNKNOWN INDICATION
     Dosage: 75 MG
     Route: 048
     Dates: end: 20160506
  45. ETODOLAC. [Concomitant]
     Active Substance: ETODOLAC
     Indication: PRODUCT USED FOR UNKNOWN INDICATION
  46. PRIMPERAN [Concomitant]
     Active Substance: METOCLOPRAMIDE HYDROCHLORIDE
     Indication: PRODUCT USED FOR UNKNOWN INDICATION
     Dosage: 10 MG, PRN
     Route: 065
     Dates: start: 20160323, end: 20160324
  47. PRIMPERAN [Concomitant]
     Active Substance: METOCLOPRAMIDE HYDROCHLORIDE
     Indication: PRODUCT USED FOR UNKNOWN INDICATION
     Dosage: 10 MG, PRN
     Route: 065
     Dates: start: 20160528, end: 20160528
  48. MEROPENEM. [Concomitant]
     Active Substance: MEROPENEM
     Indication: PRODUCT USED FOR UNKNOWN INDICATION
     Dosage: 0.5 G
     Route: 065
     Dates: start: 20160325, end: 20160328
  49. COAHIBITOR [Suspect]
     Active Substance: NAFAMOSTAT MESYLATE
     Indication: PRODUCT USED FOR UNKNOWN INDICATION
     Dosage: 40 MG
     Route: 065
     Dates: start: 20160322, end: 20160326
  50. COAHIBITOR [Suspect]
     Active Substance: NAFAMOSTAT MESYLATE
     Dosage: 20 MG
     Route: 065
     Dates: start: 20160705, end: 20160705
  51. COAHIBITOR [Suspect]
     Active Substance: NAFAMOSTAT MESYLATE
     Dosage: 40 MG
     Route: 065
     Dates: start: 20160706, end: 20160712
  52. OMEPRAZOLE. [Suspect]
     Active Substance: OMEPRAZOLE
     Dosage: 40 UNK  *SINGLE *SINGLE
     Route: 065
     Dates: start: 20160707, end: 20160712
  53. AMLODIPINE [Concomitant]
     Active Substance: AMLODIPINE BESYLATE
     Indication: HYPERTENSION
     Dosage: 2.5 UNK  *SINGLE
     Route: 048
  54. ANTEBATE [Concomitant]
     Active Substance: BETAMETHASONE DIPROPIONATE
     Indication: PRODUCT USED FOR UNKNOWN INDICATION
     Dosage: UNK
     Route: 061
     Dates: start: 20160318, end: 20160322
  55. LECICARBON [Concomitant]
     Active Substance: SODIUM BICARBONATE\SODIUM PHOSPHATE, MONOBASIC
     Indication: HYPERPARATHYROIDISM PRIMARY
     Dosage: 1 UNK  *SINGLE
     Route: 054
     Dates: start: 20160329
  56. CEFOTIAM [Concomitant]
     Active Substance: CEFOTIAM
     Indication: PRODUCT USED FOR UNKNOWN INDICATION
     Dosage: 2 UNK  *SINGLE
     Route: 065
     Dates: start: 20160526, end: 20160527

REACTIONS (16)
  - Duodenal ulcer [Recovering/Resolving]
  - Supraventricular extrasystoles [Recovered/Resolved]
  - Diarrhoea [Recovering/Resolving]
  - Dermatitis [Recovered/Resolved]
  - Pancreatitis acute [Recovering/Resolving]
  - Vomiting [Recovered/Resolved]
  - Amylase increased [Recovered/Resolved]
  - Duodenal ulcer [Recovering/Resolving]
  - Vomiting [Recovering/Resolving]
  - Procedural pain [Recovered/Resolved]
  - Dermatitis [Recovered/Resolved]
  - Vomiting [Recovering/Resolving]
  - Vomiting [Recovering/Resolving]
  - C-reactive protein increased [Recovered/Resolved]
  - Anaemia [Recovered/Resolved]
  - Pancreatitis [Recovering/Resolving]

NARRATIVE: CASE EVENT DATE: 20160311
